FAERS Safety Report 11203879 (Version 1)
Quarter: 2015Q2

REPORT INFORMATION
  Report Type: Spontaneous
  Country: BR (occurrence: BR)
  Receive Date: 20150619
  Receipt Date: 20150619
  Transmission Date: 20150821
  Serious: Yes (Other)
  Sender: FDA-Public Use
  Company Number: PHHY2015BR073771

PATIENT
  Age: 22 Year
  Sex: Male

DRUGS (1)
  1. TEGRETOL [Suspect]
     Active Substance: CARBAMAZEPINE
     Indication: PRODUCT USED FOR UNKNOWN INDICATION
     Dosage: 3 DF (THREE TABLETS), BID (IN THE MORNING AND AT NIGHT)
     Route: 065

REACTIONS (5)
  - Coordination abnormal [Unknown]
  - Discomfort [Unknown]
  - Seizure [Unknown]
  - Somnolence [Unknown]
  - Emotional distress [Unknown]
